FAERS Safety Report 5841485-3 (Version None)
Quarter: 2008Q3

REPORT INFORMATION
  Report Type: 
  Country: None (occurrence: None)
  Receive Date: 20080812
  Receipt Date: 20080804
  Transmission Date: 20090109
  Serious: Yes (Other)
  Sender: FDA-Public Use
  Company Number: GB-TEVA-175388ISR

PATIENT
  Age: 60 Year
  Sex: Female

DRUGS (1)
  1. ALENDRONIC ACID [Suspect]
     Indication: OSTEOPOROSIS
     Route: 048
     Dates: end: 20080610

REACTIONS (5)
  - ABDOMINAL DISCOMFORT [None]
  - HALLUCINATION [None]
  - MOOD ALTERED [None]
  - MYODESOPSIA [None]
  - SUICIDAL IDEATION [None]
